FAERS Safety Report 14586332 (Version 3)
Quarter: 2021Q3

REPORT INFORMATION
  Report Type: Spontaneous
  Country: US (occurrence: US)
  Receive Date: 20180301
  Receipt Date: 20210819
  Transmission Date: 20211014
  Serious: Yes (Disabling)
  Sender: FDA-Public Use
  Company Number: US-TEVA-2018-US-865711

PATIENT
  Age: 54 Year
  Sex: Female
  Weight: 110.23 kg

DRUGS (11)
  1. DOCETAXEL SANDOZ [Suspect]
     Active Substance: DOCETAXEL
     Indication: BREAST CANCER FEMALE
     Dosage: DOSE: 169MG, STRENGTH: 75MG/M2, NO OF CYCLES: 02, FREQUENCY: EVERY THREE WEEKS
     Route: 042
     Dates: start: 20141112, end: 20141217
  2. TRASTUZUMAB. [Suspect]
     Active Substance: TRASTUZUMAB
     Dosage: DOSE: 216MG (2MG/KG), NO OF CYCLES: 02, FREQUENCY: EVERY THREE WEEKS
     Route: 042
     Dates: start: 20141119, end: 20141119
  3. DOCETAXEL HOSPIRA [Suspect]
     Active Substance: DOCETAXEL
     Indication: BREAST CANCER FEMALE
     Dosage: DOSE: 169MG, STRENGTH: 75MG/M2, NO OF CYCLES: 02, FREQUENCY: EVERY THREE WEEKS
     Route: 042
     Dates: start: 20141112, end: 20141217
  4. TRASTUZUMAB. [Suspect]
     Active Substance: TRASTUZUMAB
     Dosage: DOSE: 216MG (2MG/KG), NO OF CYCLES: 02, FREQUENCY: EVERY THREE WEEKS
     Route: 042
     Dates: start: 20141126, end: 20141126
  5. LEVOTHYROXIN [Concomitant]
     Active Substance: LEVOTHYROXINE
     Indication: POST PROCEDURAL HYPOTHYROIDISM
     Route: 065
  6. DOCETAXEL SAGENT [Suspect]
     Active Substance: DOCETAXEL
     Indication: BREAST CANCER FEMALE
     Dosage: DOSE: 169MG, STRENGTH: 75MG/M2, NO OF CYCLES: 02, FREQUENCY: EVERY THREE WEEKS
     Route: 042
     Dates: start: 20141112, end: 20141217
  7. CARBOPLATIN. [Suspect]
     Active Substance: CARBOPLATIN
     Indication: BREAST CANCER FEMALE
     Dosage: DOSE: 930MG, NO OF CYCLES: 02, FREQUENCY: EVERY THREE WEEKS
     Route: 042
     Dates: start: 20141112, end: 20141217
  8. TRASTUZUMAB. [Suspect]
     Active Substance: TRASTUZUMAB
     Indication: BREAST CANCER FEMALE
     Dosage: DOSE: 432MG (4MG/KG), NO OF CYCLES: 02, FREQUENCY: EVERY THREE WEEKS
     Route: 042
     Dates: start: 20141112, end: 20141112
  9. TRASTUZUMAB. [Suspect]
     Active Substance: TRASTUZUMAB
     Dosage: DOSE: 216MG (2MG/KG), NO OF CYCLES: 02, FREQUENCY: EVERY THREE WEEKS
     Route: 042
     Dates: start: 20141231, end: 20141231
  10. TRASTUZUMAB. [Suspect]
     Active Substance: TRASTUZUMAB
     Dosage: DOSE: 216MG (2MG/KG), NO OF CYCLES: 02, FREQUENCY: EVERY THREE WEEKS
     Route: 042
     Dates: start: 20141224, end: 20141224
  11. TRASTUZUMAB. [Suspect]
     Active Substance: TRASTUZUMAB
     Dosage: DOSE: 216MG (2MG/KG), NO OF CYCLES: 02, FREQUENCY: EVERY THREE WEEKS
     Route: 042
     Dates: start: 20141217, end: 20141217

REACTIONS (15)
  - Constipation [Unknown]
  - Alopecia areata [Not Recovered/Not Resolved]
  - Madarosis [Not Recovered/Not Resolved]
  - Alopecia totalis [Not Recovered/Not Resolved]
  - Hair texture abnormal [Not Recovered/Not Resolved]
  - Hair colour changes [Not Recovered/Not Resolved]
  - Cough [Unknown]
  - Arthralgia [Unknown]
  - Stomatitis [Unknown]
  - Tongue disorder [Unknown]
  - Headache [Unknown]
  - Nasal congestion [Unknown]
  - Diarrhoea [Recovering/Resolving]
  - Nasopharyngitis [Unknown]
  - Oral mucosal erythema [Unknown]

NARRATIVE: CASE EVENT DATE: 201411
